FAERS Safety Report 22227203 (Version 1)
Quarter: 2023Q2

REPORT INFORMATION
  Report Type: Spontaneous
  Country: CN (occurrence: CN)
  Receive Date: 20230419
  Receipt Date: 20230419
  Transmission Date: 20230721
  Serious: Yes (Other)
  Sender: FDA-Public Use
  Company Number: CN-ROCHE-3328702

PATIENT
  Age: 69 Year
  Sex: Female
  Weight: 54 kg

DRUGS (4)
  1. CAPECITABINE [Suspect]
     Active Substance: CAPECITABINE
     Indication: Breast cancer
     Dosage: 8 TIMES BEFORE AND AFTER OPERATION FOR BREAST CANCER
     Route: 048
  2. KADCYLA [Suspect]
     Active Substance: ADO-TRASTUZUMAB EMTANSINE
     Indication: Breast cancer
     Dosage: 100 MG PER VIAL
     Route: 042
     Dates: start: 202303
  3. HERCEPTIN [Suspect]
     Active Substance: TRASTUZUMAB
     Indication: Breast cancer
     Dosage: 8 TIMES BEFORE AND AFTER OPERATION FOR BREAST CANCER, INTRAVENOUS DRIP
     Route: 042
  4. PERJETA [Suspect]
     Active Substance: PERTUZUMAB
     Indication: Breast cancer
     Dosage: 8 TIMES BEFORE AND AFTER OPERATION FOR BREAST CANCER

REACTIONS (5)
  - Platelet count decreased [Not Recovered/Not Resolved]
  - Abdominal distension [Not Recovered/Not Resolved]
  - Feeling cold [Not Recovered/Not Resolved]
  - Metastases to lung [Unknown]
  - Drug intolerance [Unknown]
